FAERS Safety Report 10927936 (Version 1)
Quarter: 2015Q1

REPORT INFORMATION
  Report Type: Spontaneous
  Country: US (occurrence: None)
  Receive Date: 20150317
  Receipt Date: 20150317
  Transmission Date: 20150721
  Serious: Yes (Hospitalization)
  Sender: FDA-Public Use
  Company Number: None

PATIENT
  Age: 59 Year
  Sex: Female
  Weight: 94 kg

DRUGS (4)
  1. CONTIN [Concomitant]
  2. ACIMAX [Concomitant]
     Active Substance: OMEPRAZOLE
  3. NALTRAXONE HCL [Suspect]
     Active Substance: NALTREXONE
     Indication: DRUG THERAPY
     Dosage: TAKEN BY MOUTH, 1 CAPSULE 4.5 MG PER DAY
  4. VALIUM [Concomitant]
     Active Substance: DIAZEPAM

REACTIONS (11)
  - Screaming [None]
  - Vomiting [None]
  - Hyperhidrosis [None]
  - Abdominal discomfort [None]
  - Burning sensation [None]
  - Muscle spasms [None]
  - Dyspnoea [None]
  - Pain [None]
  - Fear [None]
  - Body temperature decreased [None]
  - Yawning [None]

NARRATIVE: CASE EVENT DATE: 20150312
